FAERS Safety Report 5099202-3 (Version None)
Quarter: 2006Q3

REPORT INFORMATION
  Report Type: 
  Country: None (occurrence: None)
  Receive Date: 20060731
  Receipt Date: 20050826
  Transmission Date: 20061208
  Serious: Yes (Other)
  Sender: FDA-Public Use
  Company Number: 217013

PATIENT
  Age: 58 Year
  Sex: Female
  Weight: 84.4 kg

DRUGS (3)
  1. HERCEPTIN [Suspect]
     Indication: BREAST CANCER METASTATIC
     Dosage: 166 MG, 1/WEEK, INTRAVENOUS
     Route: 042
     Dates: start: 20050520, end: 20050801
  2. IBUPROFEN [Concomitant]
  3. ARIMIDEX [Concomitant]

REACTIONS (1)
  - EJECTION FRACTION DECREASED [None]
